FAERS Safety Report 24084741 (Version 1)
Quarter: 2024Q3

REPORT INFORMATION
  Report Type: Spontaneous
  Country: CN (occurrence: CN)
  Receive Date: 20240712
  Receipt Date: 20240712
  Transmission Date: 20241017
  Serious: Yes (Other)
  Sender: PFIZER
  Company Number: CN-PFIZER INC-PV202400090650

PATIENT
  Age: 71 Year
  Sex: Male
  Weight: 69 kg

DRUGS (2)
  1. METHOTREXATE SODIUM [Suspect]
     Active Substance: METHOTREXATE SODIUM
     Indication: Acute lymphocytic leukaemia
     Dosage: 1 G, 1X/DAY
     Route: 041
     Dates: start: 20240617, end: 20240617
  2. CYTARABINE [Suspect]
     Active Substance: CYTARABINE
     Indication: Acute lymphocytic leukaemia
     Dosage: 3 G, 2X/DAY
     Route: 041
     Dates: start: 20240618, end: 20240619

REACTIONS (3)
  - Platelet count decreased [Recovering/Resolving]
  - Epistaxis [Recovering/Resolving]
  - Myelosuppression [Recovering/Resolving]

NARRATIVE: CASE EVENT DATE: 20240630
